FAERS Safety Report 6240245-1 (Version None)
Quarter: 2009Q2

REPORT INFORMATION
  Report Type: 
  Country: None (occurrence: None)
  Receive Date: 20090623
  Receipt Date: 20080507
  Transmission Date: 20091009
  Serious: No
  Sender: FDA-Public Use
  Company Number: US-ASTRAZENECA-2008UW09311

PATIENT
  Age: 54 Month
  Sex: Male

DRUGS (2)
  1. PULMICORT-100 [Suspect]
     Route: 055
     Dates: start: 20080301
  2. XOPENEX [Suspect]
     Dosage: 0.63 MG/3ML
     Route: 055
     Dates: start: 20080301

REACTIONS (3)
  - ABNORMAL BEHAVIOUR [None]
  - AGGRESSION [None]
  - MEDICATION ERROR [None]
